FAERS Safety Report 11276011 (Version 1)
Quarter: 2015Q3

REPORT INFORMATION
  Report Type: Spontaneous
  Country: US (occurrence: US)
  Receive Date: 20150716
  Receipt Date: 20150716
  Transmission Date: 20151125
  Serious: Yes (Hospitalization, Other)
  Sender: FDA-Public Use
  Company Number: US-ASTRAZENECA-2015SE67991

PATIENT
  Age: 24 Year
  Sex: Male

DRUGS (1)
  1. SEROQUEL [Suspect]
     Active Substance: QUETIAPINE FUMARATE
     Route: 048

REACTIONS (7)
  - Hypophagia [Unknown]
  - Impaired driving ability [Unknown]
  - Head injury [Unknown]
  - Impaired work ability [Unknown]
  - Insomnia [Unknown]
  - Seizure [Unknown]
  - Memory impairment [Unknown]
